FAERS Safety Report 5847543-1 (Version None)
Quarter: 2008Q3

REPORT INFORMATION
  Report Type: 
  Country: None (occurrence: None)
  Receive Date: 20080814
  Receipt Date: 20080805
  Transmission Date: 20090109
  Serious: Yes (Hospitalization)
  Sender: FDA-Public Use
  Company Number: 2008BI012428

PATIENT
  Age: 64 Year
  Sex: Female

DRUGS (1)
  1. TYSABRI [Suspect]
     Indication: MULTIPLE SCLEROSIS
     Dosage: 300MG; QM; IV
     Route: 042
     Dates: start: 20080319

REACTIONS (4)
  - BEDRIDDEN [None]
  - BLOOD GLUCOSE DECREASED [None]
  - DECUBITUS ULCER [None]
  - PNEUMONIA [None]
